FAERS Safety Report 23379324 (Version 2)
Quarter: 2024Q1

REPORT INFORMATION
  Report Type: Report from Study
  Country: CA (occurrence: CA)
  Receive Date: 20240108
  Receipt Date: 20240115
  Transmission Date: 20240409
  Serious: Yes (Other)
  Sender: FDA-Public Use
  Company Number: CA-TAKEDA-2024TUS000688

PATIENT
  Age: 59 Year
  Sex: Female

DRUGS (5)
  1. VEDOLIZUMAB [Suspect]
     Active Substance: VEDOLIZUMAB
     Indication: Crohn^s disease
     Dosage: 300 MILLIGRAM
     Route: 042
     Dates: start: 20220917
  2. VEDOLIZUMAB [Suspect]
     Active Substance: VEDOLIZUMAB
     Dosage: 300 MILLIGRAM, Q4WEEKS
     Route: 042
     Dates: start: 20230829
  3. VEDOLIZUMAB [Suspect]
     Active Substance: VEDOLIZUMAB
     Dosage: 300 MILLIGRAM, Q4WEEKS
     Route: 042
  4. CITALOPRAM [Concomitant]
     Active Substance: CITALOPRAM HYDROBROMIDE
     Dosage: 20 MILLIGRAM
  5. IRBESARTAN [Concomitant]
     Active Substance: IRBESARTAN
     Dosage: 300 MILLIGRAM

REACTIONS (3)
  - Arthrodesis [Recovering/Resolving]
  - Off label use [Unknown]
  - Gout [Recovering/Resolving]

NARRATIVE: CASE EVENT DATE: 20230829
